FAERS Safety Report 6203547-0 (Version None)
Quarter: 2009Q2

REPORT INFORMATION
  Report Type: 
  Country: None (occurrence: None)
  Receive Date: 20090527
  Receipt Date: 20090512
  Transmission Date: 20091009
  Serious: Yes (Hospitalization)
  Sender: FDA-Public Use
  Company Number: KE-BRISTOL-MYERS SQUIBB COMPANY-14635809

PATIENT
  Age: 47 Year
  Sex: Male

DRUGS (4)
  1. EFAVIRENZ TABS [Suspect]
     Indication: HIV INFECTION
     Dosage: 1 DOSAGE FORM = 1 TAB
     Route: 048
     Dates: start: 20090414
  2. TRUVADA [Suspect]
     Indication: HIV INFECTION
     Dosage: 1 DOSAGE FORM=1 TAB
     Route: 048
     Dates: start: 20090414
  3. RIFAFOUR [Concomitant]
     Dates: start: 20090403
  4. SEPTRIN [Concomitant]
     Dates: start: 20090407

REACTIONS (1)
  - PNEUMONIA BACTERIAL [None]
